FAERS Safety Report 17625486 (Version 1)
Quarter: 2020Q2

REPORT INFORMATION
  Report Type: Spontaneous
  Country: MX (occurrence: MX)
  Receive Date: 20200403
  Receipt Date: 20200403
  Transmission Date: 20200713
  Serious: Yes (Life-Threatening, Hospitalization, Other)
  Sender: FDA-Public Use
  Company Number: MX-ACCORD-178039

PATIENT
  Age: 29 Year
  Sex: Female

DRUGS (3)
  1. MYCOPHENOLIC ACID. [Suspect]
     Active Substance: MYCOPHENOLIC ACID
     Indication: SYSTEMIC LUPUS ERYTHEMATOSUS
     Route: 048
  2. PREDNISONE. [Suspect]
     Active Substance: PREDNISONE
     Indication: SYSTEMIC LUPUS ERYTHEMATOSUS
     Route: 048
  3. HYDROXYCHLOROQUINE [Suspect]
     Active Substance: HYDROXYCHLOROQUINE
     Indication: SYSTEMIC LUPUS ERYTHEMATOSUS
     Route: 048

REACTIONS (10)
  - Pyomyositis [Recovered/Resolved]
  - Nocardiosis [Recovered/Resolved]
  - Off label use [Unknown]
  - Brain abscess [Recovered/Resolved]
  - Endophthalmitis [Recovered/Resolved]
  - Myositis [Recovered/Resolved]
  - Perinephric abscess [Recovered/Resolved]
  - Muscle abscess [Recovered/Resolved]
  - Pneumonia [Recovered/Resolved]
  - Liver abscess [Recovered/Resolved]
